FAERS Safety Report 7773019-0 (Version None)
Quarter: 2011Q3

REPORT INFORMATION
  Report Type: 
  Country: None (occurrence: None)
  Receive Date: 20110922
  Receipt Date: 20110301
  Transmission Date: 20111222
  Serious: No
  Sender: FDA-Public Use
  Company Number: US-ASTRAZENECA-2011SE10919

PATIENT
  Age: 44 Year
  Sex: Female
  Weight: 106.6 kg

DRUGS (4)
  1. VALIUM [Concomitant]
  2. DIAZEPAM [Concomitant]
  3. SEROQUEL XR [Suspect]
     Indication: BIPOLAR DISORDER
     Route: 048
     Dates: start: 20090101, end: 20101201
  4. RESTERIL [Concomitant]

REACTIONS (6)
  - DRUG DOSE OMISSION [None]
  - DIARRHOEA [None]
  - HEADACHE [None]
  - NAUSEA [None]
  - VOMITING [None]
  - INSOMNIA [None]
